FAERS Safety Report 18258627 (Version 1)
Quarter: 2020Q3

REPORT INFORMATION
  Report Type: Spontaneous
  Country: SI (occurrence: SI)
  Receive Date: 20200911
  Receipt Date: 20200911
  Transmission Date: 20201103
  Serious: Yes (Other)
  Sender: FDA-Public Use
  Company Number: SI-BAYER-2020-194155

PATIENT
  Age: 71 Year
  Sex: Female

DRUGS (6)
  1. NOLPAZA [Concomitant]
     Active Substance: PANTOPRAZOLE SODIUM
     Dosage: 40 MG, BID
  2. EUTHYROX [Concomitant]
     Active Substance: LEVOTHYROXINE SODIUM
     Dosage: 125 MG
  3. ALDACTONE [Concomitant]
     Active Substance: SPIRONOLACTONE
     Dosage: 25 MG
  4. ADEMPAS [Suspect]
     Active Substance: RIOCIGUAT
     Dosage: 2.5 MG, TID
     Dates: start: 201711
  5. EDEMID [Concomitant]
     Active Substance: FUROSEMIDE
     Dosage: 1TBL, 2?3 TIMES A WEEK
  6. MAREVAN [Concomitant]
     Active Substance: WARFARIN SODIUM
     Dosage: UNK

REACTIONS (2)
  - Gastritis [Recovered/Resolved]
  - Cerebrovascular insufficiency [None]

NARRATIVE: CASE EVENT DATE: 20200717
